FAERS Safety Report 5674235-4 (Version None)
Quarter: 2008Q1

REPORT INFORMATION
  Report Type: 
  Country: None (occurrence: None)
  Receive Date: 20080320
  Receipt Date: 20080313
  Transmission Date: 20080703
  Serious: Yes (Other)
  Sender: FDA-Public Use
  Company Number: US-ROCHE-528326

PATIENT
  Age: 80 Year
  Sex: Female

DRUGS (7)
  1. BONIVA [Suspect]
     Indication: DRUG USE FOR UNKNOWN INDICATION
     Route: 065
  2. DIOVAN [Concomitant]
  3. DARVOCET [Concomitant]
  4. IBUPROFEN [Concomitant]
  5. HYDROCODONE BITARTRATE [Concomitant]
  6. ASPIRIN [Concomitant]
     Dosage: THE PATIENT WAS TAKING BABY ASPIRIN.
  7. MULTI-VITAMINS [Concomitant]

REACTIONS (4)
  - ARTHRALGIA [None]
  - FALL [None]
  - GROIN PAIN [None]
  - HIP ARTHROPLASTY [None]
